FAERS Safety Report 4771709-5 (Version None)
Quarter: 2005Q3

REPORT INFORMATION
  Report Type: 
  Country: None (occurrence: None)
  Receive Date: 20050914
  Receipt Date: 20050831
  Transmission Date: 20060218
  Serious: Yes (Hospitalization)
  Sender: FDA-Public Use
  Company Number: B0265403A

PATIENT
  Age: 62 Year
  Sex: Female
  Weight: 50.8936 kg

DRUGS (8)
  1. ALLOPURINOL TAB [Suspect]
     Indication: HYPERURICAEMIA
     Dosage: 100 MG /PER DAY/ORAL
     Route: 048
     Dates: start: 19990623, end: 20001201
  2. CEFTAZIDIME SODIUM [Suspect]
     Indication: BACTERIAL INFECTION
     Dosage: 1 GRAM(S) TWICE PER DAY/INTRAVENOUS
     Route: 042
     Dates: start: 20001201, end: 20010109
  3. CO-TRIMOXAZOLE (SULFAMEHTOXAZOLE/TRIMETHO) [Suspect]
     Indication: INFECTION PROPHYLAXIS
     Dosage: 960 MG/PER DAY/ORAL
     Route: 048
     Dates: start: 19991101, end: 20010101
  4. VANCOMYCIN [Suspect]
     Indication: BACTERIAL INFECTION
     Dosage: INTRAVENOUS INFUSION
     Route: 042
     Dates: end: 20011113
  5. LACT. ACID-PRODUCING ORGS [Concomitant]
  6. ALUMINIUM OH+MAGNESIUM OH [Concomitant]
  7. FLUCONAZOLE [Concomitant]
  8. PIPERACILLIN SODIUM [Concomitant]

REACTIONS (5)
  - ACUTE GENERALISED EXANTHEMATOUS PUSTULOSIS [None]
  - BACTERIAL INFECTION [None]
  - CYTOMEGALOVIRUS INFECTION [None]
  - GENERAL PHYSICAL HEALTH DETERIORATION [None]
  - HEPATIC FUNCTION ABNORMAL [None]
